FAERS Safety Report 11050708 (Version 1)
Quarter: 2015Q2

REPORT INFORMATION
  Report Type: Spontaneous
  Country: US (occurrence: None)
  Receive Date: 20150417
  Receipt Date: 20150417
  Transmission Date: 20150821
  Serious: Yes (Other)
  Sender: FDA-Public Use
  Company Number: ADR-2015-00727

PATIENT
  Age: 63 Year
  Sex: Male

DRUGS (3)
  1. MELATONIN [Concomitant]
     Active Substance: MELATONIN
  2. BACLOFEN. [Suspect]
     Active Substance: BACLOFEN
     Indication: CLUSTER HEADACHE
  3. VALPROIC ACID. [Suspect]
     Active Substance: VALPROIC ACID
     Indication: CLUSTER HEADACHE

REACTIONS (8)
  - Blood testosterone increased [None]
  - Fatigue [None]
  - Decreased appetite [None]
  - Headache [None]
  - Constipation [None]
  - Hyperammonaemia [None]
  - Mitral valve disease [None]
  - No therapeutic response [None]

NARRATIVE: CASE EVENT DATE: 20140916
